FAERS Safety Report 15131083 (Version 3)
Quarter: 2023Q1

REPORT INFORMATION
  Report Type: Spontaneous
  Country: DE (occurrence: DE)
  Receive Date: 20180711
  Receipt Date: 20230331
  Transmission Date: 20230417
  Serious: Yes (Hospitalization)
  Sender: FDA-Public Use
  Company Number: PHHY2018DE037102

PATIENT
  Age: 62 Year
  Sex: Male

DRUGS (10)
  1. CYCLOPHOSPHAMIDE [Suspect]
     Active Substance: CYCLOPHOSPHAMIDE
     Indication: Product used for unknown indication
     Dosage: UNK (NK MG, NK)
     Route: 065
  2. PREDNISOLONE [Suspect]
     Active Substance: PREDNISOLONE
     Indication: Product used for unknown indication
     Dosage: UNK (NK MG, NK)
     Route: 065
  3. VINCRISTINE [Suspect]
     Active Substance: VINCRISTINE
     Indication: Product used for unknown indication
     Dosage: UNK (NK MG, NK)
     Route: 065
  4. DAUNORUBICIN [Suspect]
     Active Substance: DAUNORUBICIN
     Indication: Product used for unknown indication
     Dosage: UNK (NK MG, NK)
     Route: 065
  5. NEULASTA [Concomitant]
     Active Substance: PEGFILGRASTIM
     Indication: Product used for unknown indication
     Dosage: 6 MG, AM
     Route: 065
     Dates: start: 20161210
  6. SULFAMETHOXAZOLE\TRIMETHOPRIM [Concomitant]
     Active Substance: SULFAMETHOXAZOLE\TRIMETHOPRIM
     Indication: Product used for unknown indication
     Dosage: UNK (800/ 160 MG, MONDAY, WEDNESDAY, FRIDAY)
     Route: 065
  7. ACYCLOVIR [Concomitant]
     Active Substance: ACYCLOVIR
     Indication: Product used for unknown indication
     Dosage: 40 MG, QD (1-0-0-0)
     Route: 065
  8. PANTOPRAZOLE [Concomitant]
     Active Substance: PANTOPRAZOLE
     Indication: Product used for unknown indication
     Dosage: 40 MG, QD (1-0-0-0)
     Route: 065
  9. ALLOPURINOL [Concomitant]
     Active Substance: ALLOPURINOL
     Indication: Product used for unknown indication
     Dosage: 300 MG, BID (1-0-0-01)
     Route: 065
  10. OPIPRAMOL [Concomitant]
     Active Substance: OPIPRAMOL
     Indication: Product used for unknown indication
     Dosage: 100 MG, QD (0-0-0-1)
     Route: 065

REACTIONS (1)
  - Micturition urgency [Unknown]

NARRATIVE: CASE EVENT DATE: 20161211
